FAERS Safety Report 7742691-3 (Version None)
Quarter: 2011Q3

REPORT INFORMATION
  Report Type: 
  Country: None (occurrence: None)
  Receive Date: 20110908
  Receipt Date: 20110908
  Transmission Date: 20111222
  Serious: Yes (Hospitalization)
  Sender: FDA-Public Use
  Company Number: None

PATIENT
  Sex: Male
  Weight: 55.3 kg

DRUGS (3)
  1. IRINOTECAN HCL [Suspect]
     Dosage: 245 MG
  2. FLUOROURACIL [Suspect]
     Dosage: 3720 MG
  3. LEUCOVORIN CALCIUM [Suspect]
     Dosage: 655 MG

REACTIONS (2)
  - DIARRHOEA [None]
  - PROCEDURAL PAIN [None]
